FAERS Safety Report 8499964-9 (Version None)
Quarter: 2012Q2

REPORT INFORMATION
  Report Type: 
  Country: None (occurrence: None)
  Receive Date: 20120629
  Receipt Date: 20120618
  Transmission Date: 20120825
  Serious: Yes (Death, Other)
  Sender: FDA-Public Use
  Company Number: 2012P1043793

PATIENT
  Age: 52 Year
  Sex: Male

DRUGS (2)
  1. IRINOTECAN HCL [Suspect]
     Indication: CHEMOTHERAPY
     Dosage: 150 MG/M2; IV
     Route: 042
  2. S-1 (NO PREF. NAME) [Suspect]
     Indication: CHEMOTHERAPY
     Dosage: 40 MG/M2;BID;PO
     Route: 048

REACTIONS (4)
  - PYREXIA [None]
  - ABDOMINAL PAIN [None]
  - CONFUSIONAL STATE [None]
  - TOXICITY TO VARIOUS AGENTS [None]
